FAERS Safety Report 11101296 (Version 1)
Quarter: 2015Q2

REPORT INFORMATION
  Report Type: Spontaneous
  Country: US (occurrence: US)
  Receive Date: 20150508
  Receipt Date: 20150508
  Transmission Date: 20150821
  Serious: No
  Sender: FDA-Public Use
  Company Number: US-PFIZER INC-2015149948

PATIENT
  Sex: Female

DRUGS (1)
  1. GABAPENTIN. [Suspect]
     Active Substance: GABAPENTIN
     Dosage: UNK
     Dates: start: 2008

REACTIONS (5)
  - Fall [Unknown]
  - Skin injury [Unknown]
  - Peripheral swelling [Unknown]
  - Cardiovascular disorder [Unknown]
  - Headache [Not Recovered/Not Resolved]
